FAERS Safety Report 9097986 (Version 1)
Quarter: 2013Q1

REPORT INFORMATION
  Report Type: Spontaneous
  Country: US (occurrence: US)
  Receive Date: 20130212
  Receipt Date: 20130212
  Transmission Date: 20140127
  Serious: No
  Sender: FDA-Public Use
  Company Number: US-PFIZER INC-2013051550

PATIENT
  Age: 31 Year
  Sex: Male
  Weight: 102 kg

DRUGS (4)
  1. CELEBREX [Suspect]
     Indication: SPONDYLITIS
     Dosage: UNK
  2. VIAGRA [Suspect]
     Indication: ERECTILE DYSFUNCTION
     Dosage: 100 MG, ONCE
     Route: 048
     Dates: start: 20130201
  3. PERCOCET [Concomitant]
     Indication: ARTHRALGIA
     Dosage: UNK
  4. FLEXERIL [Concomitant]
     Indication: ARTHRALGIA
     Dosage: UNK

REACTIONS (8)
  - Rash generalised [Not Recovered/Not Resolved]
  - Erythema [Not Recovered/Not Resolved]
  - Urticaria [Recovered/Resolved]
  - Nasal congestion [Recovered/Resolved]
  - Dyspnoea [Recovered/Resolved]
  - Dizziness [Recovered/Resolved]
  - Nausea [Recovered/Resolved]
  - Drug ineffective [Unknown]
